FAERS Safety Report 11417327 (Version 1)
Quarter: 2015Q3

REPORT INFORMATION
  Report Type: Spontaneous
  Country: CA (occurrence: CA)
  Receive Date: 20150825
  Receipt Date: 20150825
  Transmission Date: 20151125
  Serious: Yes (Other)
  Sender: FDA-Public Use
  Company Number: CA-TEVA-587773USA

PATIENT
  Age: 48 Year
  Sex: Female

DRUGS (3)
  1. B3 [Concomitant]
  2. IRON [Concomitant]
     Active Substance: IRON
  3. SEASONIQUE [Suspect]
     Active Substance: ETHINYL ESTRADIOL\LEVONORGESTREL
     Route: 065

REACTIONS (3)
  - Metrorrhagia [Unknown]
  - Menstruation irregular [Unknown]
  - Haemorrhage [Unknown]

NARRATIVE: CASE EVENT DATE: 20150815
